FAERS Safety Report 4384836-1 (Version None)
Quarter: 2004Q2

REPORT INFORMATION
  Report Type: 
  Country: None (occurrence: None)
  Receive Date: 20040617
  Receipt Date: 20040601
  Transmission Date: 20050107
  Serious: Yes (Hospitalization)
  Sender: FDA-Public Use
  Company Number: THYM-10132

PATIENT
  Age: 57 Year
  Sex: Male
  Weight: 77 kg

DRUGS (8)
  1. THYMOGLOBULIN [Suspect]
     Indication: HEART TRANSPLANT REJECTION
     Dosage: 125 MG QD
     Dates: start: 20040410, end: 20040411
  2. THYMOGLOBULIN [Suspect]
     Indication: HEART TRANSPLANT REJECTION
     Dosage: 40 MG QD
     Dates: start: 20040412, end: 20040418
  3. TACROLIMUS [Concomitant]
  4. SIROLIMUS [Concomitant]
  5. METHIMAZOLE [Concomitant]
  6. METHYLPREDNISONE [Concomitant]
  7. ENALAPRIL MALEATE [Concomitant]
  8. DOSING REGIMEN FOR METHIMAZOLE [Concomitant]

REACTIONS (6)
  - BLOOD CREATININE INCREASED [None]
  - CHILLS [None]
  - HYPERTENSION [None]
  - NAUSEA [None]
  - SERUM SICKNESS [None]
  - THROMBOCYTOPENIA [None]
